FAERS Safety Report 8775171 (Version 2)
Quarter: 2012Q4

REPORT INFORMATION
  Report Type: 
  Country: US (occurrence: US)
  Receive Date: 20120907
  Receipt Date: 20120911
  Transmission Date: 20130627
  Serious: Yes (Death)
  Sender: FDA-Public Use
  Company Number: PT-ASTELLAS-2012US007397

PATIENT
  Sex: Male
  Weight: 61 kg

DRUGS (1)
  1. TARCEVA [Suspect]
     Indication: LUNG NEOPLASM MALIGNANT
     Dosage: 150 mg, UID/QD
     Route: 048
     Dates: start: 20120228, end: 20120821

REACTIONS (1)
  - Lung neoplasm malignant [Fatal]
